FAERS Safety Report 9188579 (Version 1)
Quarter: 2013Q1

REPORT INFORMATION
  Report Type: Spontaneous
  Country: SE (occurrence: SE)
  Receive Date: 20130325
  Receipt Date: 20130325
  Transmission Date: 20140127
  Serious: Yes (Other)
  Sender: FDA-Public Use
  Company Number: SE-MYLANLABS-2013S1005745

PATIENT
  Age: 33 Year
  Sex: Female

DRUGS (2)
  1. DICLOFENAC [Suspect]
     Indication: ANALGESIC THERAPY
     Dates: start: 20130311
  2. ALVEDON [Concomitant]
     Indication: ANALGESIC THERAPY
     Dates: start: 20130311

REACTIONS (1)
  - Swollen tongue [Unknown]
